FAERS Safety Report 7483193-1 (Version None)
Quarter: 2011Q2

REPORT INFORMATION
  Report Type: 
  Country: None (occurrence: None)
  Receive Date: 20110516
  Receipt Date: 20110504
  Transmission Date: 20111010
  Serious: Yes (Death)
  Sender: FDA-Public Use
  Company Number: IT-RB-007715-08

PATIENT
  Age: 32 Year
  Sex: Female

DRUGS (4)
  1. SUBUTEX [Suspect]
     Indication: DRUG DEPENDENCE
     Route: 060
     Dates: start: 20010821, end: 20010821
  2. MINIAS [Suspect]
     Indication: ILL-DEFINED DISORDER
     Dosage: DOSING INFORMATION UNKNOWN
     Route: 065
  3. HEROIN [Suspect]
     Indication: ILL-DEFINED DISORDER
     Dosage: DOSING INFORMATION UNKNOWN
     Route: 065
  4. ANTIPSYCHOTIC AGENT [Suspect]
     Indication: ILL-DEFINED DISORDER
     Dosage: DOSING INFORMATION UNKNOWN

REACTIONS (4)
  - CARDIO-RESPIRATORY ARREST [None]
  - OVERDOSE [None]
  - TOXICITY TO VARIOUS AGENTS [None]
  - SYNCOPE [None]
